FAERS Safety Report 14348474 (Version 4)
Quarter: 2025Q1

REPORT INFORMATION
  Report Type: Spontaneous
  Country: US (occurrence: US)
  Receive Date: 20180103
  Receipt Date: 20250131
  Transmission Date: 20250408
  Serious: No
  Sender: BIOGEN
  Company Number: US-BIOGENIDEC-2010BI015323

PATIENT
  Age: 38 Year
  Sex: Female

DRUGS (9)
  1. AVONEX [Suspect]
     Active Substance: INTERFERON BETA-1A
     Indication: Multiple sclerosis
     Route: 050
     Dates: start: 20010901, end: 2003
  2. AVONEX [Suspect]
     Active Substance: INTERFERON BETA-1A
     Indication: Multiple sclerosis
     Route: 050
     Dates: start: 2003, end: 20150410
  3. AVONEX [Suspect]
     Active Substance: INTERFERON BETA-1A
  4. AVONEX [Suspect]
     Active Substance: INTERFERON BETA-1A
  5. AVONEX [Suspect]
     Active Substance: INTERFERON BETA-1A
  6. AVONEX [Suspect]
     Active Substance: INTERFERON BETA-1A
  7. AVONEX [Suspect]
     Active Substance: INTERFERON BETA-1A
  8. AVONEX [Suspect]
     Active Substance: INTERFERON BETA-1A
  9. AVONEX [Suspect]
     Active Substance: INTERFERON BETA-1A

REACTIONS (27)
  - Product dose omission issue [Recovered/Resolved]
  - Claustrophobia [Unknown]
  - Anxiety [Unknown]
  - Multiple sclerosis [Unknown]
  - Sensory disturbance [Unknown]
  - Poor venous access [Unknown]
  - Confusional state [Recovered/Resolved]
  - Vision blurred [Recovered/Resolved]
  - Retching [Recovered/Resolved]
  - Cellulitis [Recovered/Resolved]
  - Dysphemia [Recovered/Resolved]
  - Stress at work [Recovered/Resolved]
  - Fear [Recovered/Resolved]
  - Localised infection [Recovered/Resolved]
  - Memory impairment [Recovered/Resolved]
  - Back pain [Recovered/Resolved]
  - Foot fracture [Recovered/Resolved]
  - Pain in extremity [Not Recovered/Not Resolved]
  - Injection site cellulitis [Unknown]
  - Pyrexia [Unknown]
  - Headache [Unknown]
  - Injection site haemorrhage [Unknown]
  - Injection site bruising [Unknown]
  - Influenza like illness [Recovered/Resolved]
  - Dizziness [Recovered/Resolved]
  - Injection site pain [Recovered/Resolved]
  - Emotional disorder [Recovered/Resolved]

NARRATIVE: CASE EVENT DATE: 20010901
